FAERS Safety Report 7917627-2 (Version None)
Quarter: 2011Q4

REPORT INFORMATION
  Report Type: 
  Country: None (occurrence: None)
  Receive Date: 20111116
  Receipt Date: 20111103
  Transmission Date: 20120403
  Serious: Yes (Other)
  Sender: FDA-Public Use
  Company Number: US-ELI_LILLY_AND_COMPANY-US201111001826

PATIENT
  Age: 62 Year
  Sex: Female

DRUGS (14)
  1. PROAIR HFA [Concomitant]
  2. ZYPREXA [Suspect]
     Dosage: 10 MG, QD
     Dates: start: 20050101
  3. ATORVASTATIN CALCIUM [Concomitant]
  4. NIZATIDINE [Concomitant]
  5. PRAVASTATIN [Concomitant]
  6. TRIAMTERENE AND HYDROCHLOROTHIAZIDE [Concomitant]
  7. ZYPREXA [Suspect]
     Indication: SCHIZOPHRENIA
     Dosage: 5 MG, QD
     Dates: start: 19970101, end: 20050101
  8. MECLIZINE [Concomitant]
  9. MISOPROSTOL [Concomitant]
  10. IBUPROFEN [Concomitant]
  11. NEXIUM [Concomitant]
  12. AMLODIPINE BESYLATE [Concomitant]
  13. AMITRIPTYLINE HCL [Concomitant]
  14. TRAMADOL HCL [Concomitant]

REACTIONS (8)
  - HEAD INJURY [None]
  - HALLUCINATION [None]
  - OSTEOARTHRITIS [None]
  - RHEUMATOID ARTHRITIS [None]
  - BREAST CANCER STAGE IV [None]
  - STRESS [None]
  - INTENTIONAL DRUG MISUSE [None]
  - VISUAL IMPAIRMENT [None]
